FAERS Safety Report 9261767 (Version 2)
Quarter: 2013Q3

REPORT INFORMATION
  Report Type: Spontaneous
  Country: IT (occurrence: IT)
  Receive Date: 20130429
  Receipt Date: 20130726
  Transmission Date: 20140515
  Serious: Yes (Life-Threatening)
  Sender: FDA-Public Use
  Company Number: IT-ASTRAZENECA-2013SE28593

PATIENT
  Age: 20500 Day
  Sex: Female

DRUGS (3)
  1. SEROQUEL [Suspect]
     Indication: POISONING
     Route: 048
     Dates: start: 20121227, end: 20121227
  2. TAVOR [Suspect]
     Indication: POISONING
     Route: 048
     Dates: start: 20121227, end: 20121227
  3. NEURONTIN [Suspect]
     Indication: POISONING
     Route: 048
     Dates: start: 20121227, end: 20121227

REACTIONS (4)
  - Coma [Not Recovered/Not Resolved]
  - Stupor [Not Recovered/Not Resolved]
  - Drug abuse [Not Recovered/Not Resolved]
  - Poisoning [Unknown]
